FAERS Safety Report 24315905 (Version 1)
Quarter: 2024Q3

REPORT INFORMATION
  Report Type: Spontaneous
  Country: AU (occurrence: AU)
  Receive Date: 20240913
  Receipt Date: 20240913
  Transmission Date: 20241016
  Serious: Yes (Other)
  Sender: RANBAXY
  Company Number: AU-SUN PHARMACEUTICAL INDUSTRIES LTD-2024R1-467266

PATIENT
  Sex: Female

DRUGS (6)
  1. LAMOTRIGINE [Suspect]
     Active Substance: LAMOTRIGINE
     Indication: Partial seizures
     Dosage: 300 MILLIGRAM
     Route: 065
  2. LAMOTRIGINE [Suspect]
     Active Substance: LAMOTRIGINE
     Indication: Temporal lobe epilepsy
     Dosage: UNK MILLIGRAM
     Route: 065
     Dates: start: 2023
  3. LEVETIRACETAM [Suspect]
     Active Substance: LEVETIRACETAM
     Indication: Partial seizures
     Dosage: 1500 MILLIGRAM
     Route: 065
  4. LEVETIRACETAM [Suspect]
     Active Substance: LEVETIRACETAM
     Indication: Temporal lobe epilepsy
  5. BRIVARACETAM [Suspect]
     Active Substance: BRIVARACETAM
     Indication: Partial seizures
     Dosage: 500 MILLIGRAM
     Route: 065
     Dates: start: 202404
  6. BRIVARACETAM [Suspect]
     Active Substance: BRIVARACETAM
     Indication: Temporal lobe epilepsy

REACTIONS (20)
  - Amnesia [Unknown]
  - Seizure [Unknown]
  - Suicidal ideation [Unknown]
  - Anxiety [Unknown]
  - Asthenia [Unknown]
  - Balance disorder [Unknown]
  - Confusional state [Unknown]
  - Depression [Unknown]
  - Disturbance in attention [Unknown]
  - Dry skin [Unknown]
  - Dizziness [Unknown]
  - Fatigue [Unknown]
  - Feeling drunk [Unknown]
  - Hypoaesthesia [Unknown]
  - Joint noise [Unknown]
  - Mood swings [Unknown]
  - Pain [Unknown]
  - Skin lesion [Unknown]
  - Vision blurred [Unknown]
  - Tremor [Unknown]

NARRATIVE: CASE EVENT DATE: 20240401
